FAERS Safety Report 7530091-0 (Version None)
Quarter: 2011Q2

REPORT INFORMATION
  Report Type: 
  Country: None (occurrence: None)
  Receive Date: 20110607
  Receipt Date: 20110602
  Transmission Date: 20111010
  Serious: Yes (Death, Other)
  Sender: FDA-Public Use
  Company Number: PHHY2011DE48617

PATIENT
  Sex: Female
  Weight: 80 kg

DRUGS (7)
  1. ALISKIREN [Suspect]
     Indication: HYPERTENSION
     Dosage: UNK
     Route: 048
     Dates: start: 20090227
  2. BICANORM [Concomitant]
     Indication: RENAL FAILURE
     Dosage: 3 G, QD
     Route: 048
     Dates: start: 20090201
  3. PLATELETS [Concomitant]
     Dosage: UNK
  4. BETA BLOCKING AGENTS [Concomitant]
  5. VALSARTAN [Suspect]
     Indication: HYPERTENSION
     Dosage: 80 MG, QD
     Route: 048
     Dates: start: 20060501
  6. CALCIUM ACETATE [Concomitant]
     Indication: RENAL FAILURE
     Dosage: 1.5 G, QD
     Route: 048
     Dates: start: 20100701
  7. FUROSEMIDE [Concomitant]
     Indication: CARDIAC FAILURE
     Dosage: 80 MG, QD
     Route: 048
     Dates: start: 20090701

REACTIONS (7)
  - ATRIAL FIBRILLATION [None]
  - AORTIC VALVE INCOMPETENCE [None]
  - CARDIAC FAILURE [None]
  - MITRAL VALVE INCOMPETENCE [None]
  - GENERALISED OEDEMA [None]
  - RENAL FAILURE CHRONIC [None]
  - SEPSIS [None]
